FAERS Safety Report 13876812 (Version 1)
Quarter: 2017Q3

REPORT INFORMATION
  Report Type: Other
  Country: US (occurrence: US)
  Receive Date: 20170817
  Receipt Date: 20170817
  Transmission Date: 20171127
  Serious: Yes (Disabling, Other)
  Sender: FDA-Public Use
  Company Number: US-ACORDA-ACO_140824_2017

PATIENT
  Sex: Male

DRUGS (1)
  1. AMPYRA [Suspect]
     Active Substance: DALFAMPRIDINE
     Indication: MULTIPLE SCLEROSIS
     Dosage: 10 MG, BID
     Route: 048

REACTIONS (8)
  - Epilepsy [Unknown]
  - Contraindicated product administered [Unknown]
  - Fall [Unknown]
  - Road traffic accident [Unknown]
  - Cervical vertebral fracture [Unknown]
  - Walking disability [Unknown]
  - Impulsive behaviour [Unknown]
  - Therapy cessation [Unknown]

NARRATIVE: CASE EVENT DATE: 2017
